APPROVED DRUG PRODUCT: ZOLEDRONIC ACID
Active Ingredient: ZOLEDRONIC ACID
Strength: EQ 4MG BASE/100ML
Dosage Form/Route: INJECTABLE;INTRAVENOUS
Application: A210174 | Product #001 | TE Code: AP
Applicant: AMNEAL EU LTD
Approved: Oct 27, 2017 | RLD: No | RS: No | Type: RX